FAERS Safety Report 12767105 (Version 1)
Quarter: 2016Q3

REPORT INFORMATION
  Report Type: Spontaneous
  Country: BR (occurrence: BR)
  Receive Date: 20160921
  Receipt Date: 20160921
  Transmission Date: 20161109
  Serious: Yes (Other)
  Sender: FDA-Public Use
  Company Number: BR-PFIZER INC-2016435757

PATIENT
  Age: 57 Year
  Sex: Male

DRUGS (4)
  1. CITALOPRAM [Concomitant]
     Active Substance: CITALOPRAM HYDROBROMIDE
     Dosage: 20 MG, UNK
     Route: 048
  2. LYRICA [Suspect]
     Active Substance: PREGABALIN
     Indication: DEPRESSION
     Dosage: 1 TABLET 2 TIMES DAILY (STRENGTH 75 MG)
     Route: 048
  3. CARBAMAZEPINE. [Concomitant]
     Active Substance: CARBAMAZEPINE
     Dosage: 200 MG, UNK
     Route: 048
  4. TORVAL CR [Concomitant]
     Active Substance: VALPROATE SODIUM

REACTIONS (9)
  - Cerebrovascular accident [Unknown]
  - Memory impairment [Unknown]
  - Anger [Unknown]
  - Pre-existing condition improved [Unknown]
  - Feeling abnormal [Unknown]
  - Therapeutic response unexpected [Unknown]
  - Accident [Unknown]
  - Gait disturbance [Unknown]
  - Drug ineffective for unapproved indication [Unknown]
